FAERS Safety Report 12218563 (Version 1)
Quarter: 2016Q1

REPORT INFORMATION
  Report Type: Spontaneous
  Country: US (occurrence: US)
  Receive Date: 20160329
  Receipt Date: 20160329
  Transmission Date: 20160526
  Serious: No
  Sender: FDA-Public Use
  Company Number: US-BAUSCH-BL-2015-022072

PATIENT
  Age: 78 Year
  Sex: Male
  Weight: 63.56 kg

DRUGS (1)
  1. RETIN-A [Suspect]
     Active Substance: TRETINOIN
     Indication: ROSACEA
     Route: 061

REACTIONS (3)
  - Eyelid oedema [Recovering/Resolving]
  - Lacrimation increased [Recovering/Resolving]
  - Off label use [Unknown]

NARRATIVE: CASE EVENT DATE: 20150916
